FAERS Safety Report 11699062 (Version 1)
Quarter: 2015Q4

REPORT INFORMATION
  Report Type: Spontaneous
  Country: US (occurrence: US)
  Receive Date: 20151104
  Receipt Date: 20151104
  Transmission Date: 20160304
  Serious: Yes (Other)
  Sender: FDA-Public Use
  Company Number: US-BAXTER-2015BAX058318

PATIENT
  Age: 62 Year
  Sex: Female

DRUGS (14)
  1. VANCOMYCIN INJECTION, USP [Suspect]
     Active Substance: VANCOMYCIN
     Indication: LIVER ABSCESS
     Route: 042
  2. POLYMYXIN B. [Suspect]
     Active Substance: POLYMYXIN B
     Route: 065
  3. COLISTIN [Suspect]
     Active Substance: COLISTIN
     Indication: LIVER ABSCESS
     Dosage: LOADING DOSE
     Route: 065
  4. TRIMETHOPRIM-SULFAMETHOXAZOLE [Concomitant]
     Active Substance: SULFAMETHOXAZOLE\TRIMETHOPRIM
     Indication: LIVER ABSCESS
     Route: 042
  5. COLISTIN [Suspect]
     Active Substance: COLISTIN
     Route: 065
  6. POLYMYXIN B. [Suspect]
     Active Substance: POLYMYXIN B
     Indication: LIVER ABSCESS
     Route: 065
  7. GENTAMICIN SULFATE IN 0.9% SODIUM CHLORIDE INJECTION [Suspect]
     Active Substance: GENTAMICIN SULFATE
     Indication: LIVER ABSCESS
     Dosage: 7 MG/KG
     Route: 042
  8. MEROPENEM. [Suspect]
     Active Substance: MEROPENEM
     Indication: LIVER ABSCESS
     Route: 042
  9. CEFTAZIDIME-AVIBACTAM [Suspect]
     Active Substance: AVIBACTAM SODIUM\CEFTAZIDIME
     Indication: LIVER ABSCESS
     Route: 065
  10. CEFEPIME [Suspect]
     Active Substance: CEFEPIME HYDROCHLORIDE
     Indication: LIVER ABSCESS
     Route: 065
  11. PIPERACILLIN AND TAZOBACTAM [Suspect]
     Active Substance: PIPERACILLIN SODIUM\TAZOBACTAM SODIUM
     Indication: LIVER ABSCESS
     Route: 041
  12. MEROPENEM. [Suspect]
     Active Substance: MEROPENEM
     Route: 065
  13. TIGECYCLINE. [Suspect]
     Active Substance: TIGECYCLINE
     Indication: LIVER ABSCESS
     Route: 065
  14. TIGECYCLINE. [Suspect]
     Active Substance: TIGECYCLINE
     Route: 065

REACTIONS (6)
  - Renal injury [Unknown]
  - Mental status changes [Unknown]
  - Condition aggravated [Unknown]
  - Hypotension [Unknown]
  - Drug resistance [Unknown]
  - Respiratory failure [Unknown]
